FAERS Safety Report 5716144-8 (Version None)
Quarter: 2008Q2

REPORT INFORMATION
  Report Type: 
  Country: None (occurrence: None)
  Receive Date: 20080417
  Receipt Date: 20080228
  Transmission Date: 20081010
  Serious: Yes (Other)
  Sender: FDA-Public Use
  Company Number: 2008-01619

PATIENT
  Age: 51 Year
  Sex: Male
  Weight: 123.8 kg

DRUGS (1)
  1. CLARITHROMYCIN EXTENDED RELEASE [Suspect]
     Indication: BRONCHITIS
     Dosage: 2 TABLET, DAILY, ORAL
     Route: 048
     Dates: start: 20080219, end: 20080227

REACTIONS (1)
  - DEAFNESS [None]
